FAERS Safety Report 6817710-9 (Version None)
Quarter: 2010Q3

REPORT INFORMATION
  Report Type: 
  Country: None (occurrence: None)
  Receive Date: 20100706
  Receipt Date: 20100629
  Transmission Date: 20110219
  Serious: Yes (Other)
  Sender: FDA-Public Use
  Company Number: JP-PFIZER INC-2010080589

PATIENT

DRUGS (2)
  1. ATARAX [Suspect]
  2. SELENICA-R [Concomitant]

REACTIONS (2)
  - BASOPHIL COUNT INCREASED [None]
  - PLATELET COUNT INCREASED [None]
